FAERS Safety Report 4949954-5 (Version None)
Quarter: 2006Q1

REPORT INFORMATION
  Report Type: 
  Country: None (occurrence: None)
  Receive Date: 20060127
  Receipt Date: 20050325
  Transmission Date: 20060701
  Serious: Yes (Death)
  Sender: FDA-Public Use
  Company Number: 05-03-0479

PATIENT
  Age: 41 Year
  Sex: Male

DRUGS (3)
  1. CLOZAPINE [Suspect]
     Dosage: 300 MG QD, ORAL
     Route: 048
     Dates: start: 20050101, end: 20050301
  2. ZIPRASIDONE HCL [Concomitant]
  3. VALPROIC ACID [Concomitant]

REACTIONS (1)
  - DEATH [None]
